FAERS Safety Report 23914517 (Version 2)
Quarter: 2024Q3

REPORT INFORMATION
  Report Type: Report from Study
  Country: CN (occurrence: CN)
  Receive Date: 20240529
  Receipt Date: 20240828
  Transmission Date: 20241017
  Serious: Yes (Hospitalization, Other)
  Sender: RANBAXY
  Company Number: CN-SUN PHARMACEUTICAL INDUSTRIES LTD-2024R1-448503

PATIENT
  Age: 75 Year
  Sex: Female
  Weight: 37 kg

DRUGS (13)
  1. SONIDEGIB [Suspect]
     Active Substance: SONIDEGIB
     Indication: Basal cell carcinoma
     Dosage: 200 MILLIGRAM, QD
     Route: 048
     Dates: start: 20230814, end: 20231204
  2. SONIDEGIB [Suspect]
     Active Substance: SONIDEGIB
     Dosage: 200 MILLIGRAM, QD
     Route: 048
     Dates: start: 20240103, end: 20240423
  3. Colloidal Gel Suspension [Concomitant]
     Indication: Chronic gastritis
     Dosage: 150 MILLIGRAM, QID
     Route: 048
     Dates: start: 20240503, end: 20240509
  4. FERROUS SUCCINATE [Concomitant]
     Active Substance: FERROUS SUCCINATE
     Indication: Iron deficiency anaemia
     Dosage: 0.1 GRAM, TID
     Route: 048
     Dates: start: 20240326, end: 20240527
  5. Jian wei xiao shi oral liquid [Concomitant]
     Indication: Dyspepsia
     Dosage: 10 MILLILITER, BID
     Route: 048
     Dates: start: 20240430, end: 20240504
  6. Kangfuxin [Concomitant]
     Indication: Chronic gastritis
     Dosage: 10 MILLILITER, TID
     Route: 048
     Dates: start: 20240503, end: 20240509
  7. OMEPRAZOLE [Concomitant]
     Active Substance: OMEPRAZOLE
     Indication: Chronic gastritis
     Dosage: 40 MILLIGRAM, QD
     Route: 042
     Dates: start: 20240430, end: 20240504
  8. PIPERACILLIN AND TAZOBACTAM [Concomitant]
     Active Substance: PIPERACILLIN SODIUM\TAZOBACTAM SODIUM
     Indication: Anti-infective therapy
     Dosage: 4.5 GRAM, EVERY 12 HOURS
     Route: 042
     Dates: start: 202405, end: 202405
  9. POTASSIUM CHLORIDE [Concomitant]
     Active Substance: POTASSIUM CHLORIDE
     Indication: Mineral supplementation
     Dosage: 5 MILLILITER, QD
     Route: 042
     Dates: start: 20240430, end: 20240504
  10. RABEPRAZOLE SODIUM [Concomitant]
     Active Substance: RABEPRAZOLE SODIUM
     Indication: Chronic gastritis
     Dosage: 200 MILLIGRAM, QD
     Route: 048
     Dates: start: 20240503, end: 20240509
  11. ERYTHROPOIETIN [Concomitant]
     Active Substance: ERYTHROPOIETIN
     Indication: Iron deficiency anaemia
     Dosage: 3000IU, QD
     Route: 058
     Dates: start: 20240501, end: 20240501
  12. Sheng xue bao granules [Concomitant]
     Indication: Iron deficiency anaemia
     Dosage: 8 GRAM, BID
     Route: 048
     Dates: start: 20231204, end: 20240527
  13. Kangfuxin Solution [Concomitant]
     Indication: Chronic gastritis
     Dosage: 10 MILLILITER, TID
     Route: 048
     Dates: start: 20240503, end: 20240509

REACTIONS (1)
  - Pneumonia [Not Recovered/Not Resolved]

NARRATIVE: CASE EVENT DATE: 20240509
